FAERS Safety Report 8308895 (Version 5)
Quarter: 2013Q3

REPORT INFORMATION
  Report Type: Spontaneous
  Country: US (occurrence: US)
  Receive Date: 20111222
  Receipt Date: 20130806
  Transmission Date: 20140515
  Serious: Yes (Hospitalization)
  Sender: FDA-Public Use
  Company Number: US-ACTELION-A-US2011-58402

PATIENT
  Age: 70 Year
  Sex: Female

DRUGS (2)
  1. VENTAVIS [Suspect]
     Indication: PORTOPULMONARY HYPERTENSION
     Dosage: 20 ?G/ML,
     Route: 055
  2. REVATIO [Concomitant]

REACTIONS (3)
  - Hepatic cancer [Unknown]
  - Blood bilirubin increased [Unknown]
  - Liver operation [Unknown]
